FAERS Safety Report 20013403 (Version 2)
Quarter: 2022Q4

REPORT INFORMATION
  Report Type: Spontaneous
  Country: GB (occurrence: GB)
  Receive Date: 20211029
  Receipt Date: 20221027
  Transmission Date: 20230113
  Serious: Yes (Death, Other)
  Sender: FDA-Public Use
  Company Number: GB-PFIZER INC-202101399277

PATIENT
  Age: 40 Year
  Sex: Male

DRUGS (2)
  1. COMIRNATY [Suspect]
     Active Substance: TOZINAMERAN
     Indication: COVID-19 immunisation
     Dosage: DOSE 1, SINGLE
  2. METHYLPREDNISOLONE SODIUM SUCCINATE [Suspect]
     Active Substance: METHYLPREDNISOLONE SODIUM SUCCINATE
     Dosage: UNK
     Route: 042

REACTIONS (10)
  - Death [Fatal]
  - IIIrd nerve paralysis [Unknown]
  - Cerebral venous sinus thrombosis [Unknown]
  - Headache [Unknown]
  - Visual impairment [Unknown]
  - Muscular weakness [Unknown]
  - Petechiae [Unknown]
  - Platelet count decreased [Unknown]
  - Fibrin D dimer increased [Unknown]
  - Platelet factor 4 [Unknown]
